FAERS Safety Report 12237174 (Version 1)
Quarter: 2016Q2

REPORT INFORMATION
  Report Type: Report from Study
  Country: CA (occurrence: CA)
  Receive Date: 20160405
  Receipt Date: 20160405
  Transmission Date: 20160815
  Serious: Yes (Other)
  Sender: FDA-Public Use
  Company Number: CA-BEH-2016060264

PATIENT

DRUGS (1)
  1. C1 ESTERASE INHIBITOR CONCENTRATE [Suspect]
     Active Substance: CONESTAT ALFA
     Indication: ANGIOEDEMA

REACTIONS (5)
  - Endotracheal intubation [Unknown]
  - Off label use [Unknown]
  - Disease recurrence [None]
  - Drug ineffective for unapproved indication [Unknown]
  - Angioedema [None]
